FAERS Safety Report 4304090-6 (Version None)
Quarter: 2004Q1

REPORT INFORMATION
  Report Type: 
  Country: None (occurrence: None)
  Receive Date: 20040223
  Receipt Date: 20031219
  Transmission Date: 20041129
  Serious: No
  Sender: FDA-Public Use
  Company Number: PHEH2003US11603

PATIENT
  Age: 74 Year
  Sex: Male

DRUGS (7)
  1. ZELNORM [Suspect]
     Dosage: 6 MG, BID, UNK
     Route: 065
  2. FUROSEMIDE [Concomitant]
  3. BUSPIRONE HCL [Concomitant]
  4. DESYREL [Concomitant]
  5. PROSCAR [Concomitant]
  6. DETROL [Concomitant]
  7. SURFAK (DOCUSATE CALCIUM) [Concomitant]

REACTIONS (1)
  - BLADDER SPASM [None]
